FAERS Safety Report 20384428 (Version 1)
Quarter: 2022Q1

REPORT INFORMATION
  Report Type: Spontaneous
  Country: US (occurrence: None)
  Receive Date: 20220127
  Receipt Date: 20220127
  Transmission Date: 20220423
  Serious: Yes (Life-Threatening, Hospitalization)
  Sender: FDA-Public Use
  Company Number: None

PATIENT
  Age: 74 Year
  Sex: Male
  Weight: 134 kg

DRUGS (1)
  1. IBRUTINIB [Suspect]
     Active Substance: IBRUTINIB
     Indication: Central nervous system lymphoma
     Dosage: FREQUENCY : DAILY;?
     Route: 048
     Dates: start: 20200827, end: 20220127

REACTIONS (2)
  - Arrhythmia supraventricular [None]
  - Cardiac failure [None]

NARRATIVE: CASE EVENT DATE: 20220107
